FAERS Safety Report 6613821-1 (Version None)
Quarter: 2010Q1

REPORT INFORMATION
  Report Type: 
  Country: None (occurrence: None)
  Receive Date: 20100225
  Receipt Date: 20100210
  Transmission Date: 20100710
  Serious: Yes (Death, Other)
  Sender: FDA-Public Use
  Company Number: 2009000008

PATIENT
  Age: 50 Year
  Sex: Male
  Weight: 64.5 kg

DRUGS (13)
  1. ERLOTINIB (ERLOTINIB) (TABLET) (ERLOTINIB) [Suspect]
     Indication: LUNG ADENOCARCINOMA
     Dosage: (150 MG,QD),ORAL
     Route: 048
     Dates: start: 20080527, end: 20081210
  2. FERROMIA (FERROUS CITRATE) [Concomitant]
  3. ACETAMINOPHEN [Concomitant]
  4. LENDORM [Concomitant]
  5. LOXONIN (LOXOPROFEN SODIUM) [Concomitant]
  6. MUCOSTA (REBAMIPIDE) [Concomitant]
  7. OXYCONTIN [Concomitant]
  8. OXYCODONE HCL [Concomitant]
  9. FENTANYL-100 [Concomitant]
  10. MAGNESIUM OXIDE (MAGNESIUM OXIDE) [Concomitant]
  11. SENNOSIDE [Concomitant]
  12. NOVAMIN (PROCHLORPERAZINE) [Concomitant]
  13. BISOPROLOL FUMARATE [Concomitant]

REACTIONS (4)
  - BLOOD AMYLASE INCREASED [None]
  - LUNG ADENOCARCINOMA [None]
  - MALIGNANT ASCITES [None]
  - MALIGNANT NEOPLASM PROGRESSION [None]
